FAERS Safety Report 25800095 (Version 1)
Quarter: 2025Q3

REPORT INFORMATION
  Report Type: Spontaneous
  Country: US (occurrence: US)
  Receive Date: 20250915
  Receipt Date: 20250915
  Transmission Date: 20251021
  Serious: Yes (Other)
  Sender: ABBVIE
  Company Number: US-ABBVIE-6452378

PATIENT
  Age: 82 Year

DRUGS (1)
  1. REFRESH RELIEVA PF [Suspect]
     Active Substance: CARBOXYMETHYLCELLULOSE SODIUM\GLYCERIN
     Indication: Macular degeneration
     Route: 047

REACTIONS (3)
  - Deafness [Unknown]
  - Visual impairment [Unknown]
  - Off label use [Unknown]
